FAERS Safety Report 8594051 (Version 6)
Quarter: 2012Q4

REPORT INFORMATION
  Report Type: 
  Country: US (occurrence: US)
  Receive Date: 20120604
  Receipt Date: 20121105
  Transmission Date: 20130627
  Serious: Yes (Hospitalization, Other)
  Sender: FDA-Public Use
  Company Number: PHEH2012US011159

PATIENT
  Age: 43 Year
  Sex: Male

DRUGS (12)
  1. GILENYA [Suspect]
     Indication: MULTIPLE SCLEROSIS
     Dosage: 0.5 mg, QD
     Route: 048
     Dates: start: 20120406
  2. BACLOFEN [Concomitant]
     Dosage: 10 mg, BID
     Route: 048
  3. CYANOCOBALAMIN [Concomitant]
     Dosage: 1000 ug, QD
     Route: 048
  4. OMEGA 3 FISH OIL [Concomitant]
     Dosage: 500 mg, QD
     Route: 048
  5. ASCORBIC ACID [Concomitant]
     Dosage: 500 mg, QD
     Route: 048
  6. PHENYTOIN [Concomitant]
     Dosage: 1 DF, TID
     Route: 048
  7. ZOLPIDEM [Concomitant]
     Dosage: 1 DF, at bed time
     Route: 048
  8. CITALOPRAM [Concomitant]
     Dosage: 1 DF, QD
     Route: 048
  9. FAMOTIDINE [Concomitant]
     Dosage: 1 DF, BID
     Route: 048
  10. BUSPIRONE [Concomitant]
     Dosage: 2 DF, QD
     Route: 048
  11. ARIPIPRAZOLE [Concomitant]
     Dosage: 1 DF, QD
     Route: 048
  12. MULTIVITAMINS [Concomitant]
     Dosage: 1 DF, QD

REACTIONS (10)
  - Convulsion [Unknown]
  - Grand mal convulsion [Recovered/Resolved]
  - Urinary incontinence [Unknown]
  - Multiple sclerosis [Unknown]
  - Central nervous system lesion [Unknown]
  - Affect lability [Unknown]
  - Gait disturbance [Unknown]
  - Clostridium difficile infection [Unknown]
  - Memory impairment [Unknown]
  - Urinary tract infection [Unknown]
